FAERS Safety Report 9024794 (Version 2)
Quarter: 2013Q1

REPORT INFORMATION
  Report Type: Spontaneous
  Country: US (occurrence: US)
  Receive Date: 20130121
  Receipt Date: 20130221
  Transmission Date: 20140127
  Serious: No
  Sender: FDA-Public Use
  Company Number: US-BIOGENIDEC-2013BI002861

PATIENT
  Age: 37 Year
  Sex: Female

DRUGS (2)
  1. TYSABRI [Suspect]
     Indication: MULTIPLE SCLEROSIS
     Route: 042
     Dates: start: 20100203
  2. TOPAMAX [Concomitant]
     Indication: MIGRAINE

REACTIONS (8)
  - Eye pain [Not Recovered/Not Resolved]
  - Colour blindness acquired [Not Recovered/Not Resolved]
  - Vision blurred [Not Recovered/Not Resolved]
  - Optic neuritis [Not Recovered/Not Resolved]
  - Poor venous access [Recovered/Resolved]
  - Eye swelling [Not Recovered/Not Resolved]
  - Multiple sclerosis relapse [Unknown]
  - Herpes zoster [Recovered/Resolved]
